FAERS Safety Report 8578385-4 (Version None)
Quarter: 2012Q3

REPORT INFORMATION
  Report Type: 
  Country: None (occurrence: None)
  Receive Date: 20120808
  Receipt Date: 20120725
  Transmission Date: 20120928
  Serious: No
  Sender: FDA-Public Use
  Company Number: US-JNJFOC-20120714879

PATIENT
  Sex: Female

DRUGS (12)
  1. SERTRALINE HYDROCHLORIDE [Suspect]
     Indication: NEUROPATHY PERIPHERAL
     Route: 048
     Dates: end: 20120101
  2. OMEPRAZOLE [Concomitant]
     Indication: PRODUCT USED FOR UNKNOWN INDICATION
     Route: 048
  3. AMLODIPINE [Concomitant]
     Indication: HYPERTENSION
     Route: 048
  4. SENNA PLUS [Concomitant]
     Indication: LAXATIVE SUPPORTIVE CARE
     Route: 048
  5. FENTANYL [Suspect]
     Indication: CANCER PAIN
     Dosage: 100 UG/HR AND 50 UG/HR (NDC-0781-7242-55)
     Route: 062
     Dates: start: 20120401
  6. CALCIUM [Concomitant]
     Indication: MINERAL SUPPLEMENTATION
     Route: 048
  7. LIDODERM [Concomitant]
     Indication: PAIN
     Route: 062
  8. MUTIVITAMINS [Concomitant]
     Indication: VITAMIN SUPPLEMENTATION
     Route: 048
  9. FENTANYL [Suspect]
     Dosage: 100 UG/HR AND 25 UG/HR
     Route: 062
     Dates: start: 20110101, end: 20120401
  10. MORPHINE SULFATE [Concomitant]
     Indication: BREAKTHROUGH PAIN
     Route: 048
  11. PREDNISONE TAB [Concomitant]
     Indication: NEOPLASM MALIGNANT
     Route: 048
  12. FOLIC ACID [Concomitant]
     Indication: NEOPLASM MALIGNANT

REACTIONS (4)
  - PAIN [None]
  - HYPERHIDROSIS [None]
  - INAPPROPRIATE SCHEDULE OF DRUG ADMINISTRATION [None]
  - PRODUCT QUALITY ISSUE [None]
